FAERS Safety Report 14685942 (Version 3)
Quarter: 2018Q2

REPORT INFORMATION
  Report Type: Report from Study
  Country: RO (occurrence: RO)
  Receive Date: 20180327
  Receipt Date: 20180424
  Transmission Date: 20180711
  Serious: Yes (Hospitalization)
  Sender: FDA-Public Use
  Company Number: RO-AMGEN-ROUCT2018041717

PATIENT
  Age: 67 Year
  Sex: Female
  Weight: 105 kg

DRUGS (14)
  1. CARFILZOMIB [Suspect]
     Active Substance: CARFILZOMIB
     Indication: PLASMA CELL MYELOMA
     Dosage: UNK, PER CHEMO REGIM
     Route: 042
     Dates: start: 20180212
  2. DEXAMETHASONE. [Concomitant]
     Active Substance: DEXAMETHASONE
     Indication: PLASMA CELL MYELOMA
     Dosage: 20-40 MG, UNK
     Dates: start: 20180212
  3. LORATADINE. [Concomitant]
     Active Substance: LORATADINE
     Dosage: 20 MG, UNK
     Route: 048
     Dates: start: 20180212
  4. DARATUMUMAB [Suspect]
     Active Substance: DARATUMUMAB
     Indication: PLASMA CELL MYELOMA
     Dosage: UNK, PER CHEMO REGIM
     Route: 042
     Dates: start: 20180212
  5. CARFILZOMIB [Suspect]
     Active Substance: CARFILZOMIB
     Dosage: 123 MG, PER CHEMO REGIM
     Route: 042
     Dates: start: 20180416
  6. SUMETROLIM [Concomitant]
     Active Substance: SULFAMETHOXAZOLE\TRIMETHOPRIM
     Dosage: 400 MG, UNK
     Dates: start: 20180205
  7. ASPENTER [Concomitant]
     Active Substance: ASPIRIN
     Dosage: 75 MG, UNK
     Dates: start: 20180205, end: 20180224
  8. VANCOMICINA [Concomitant]
     Active Substance: VANCOMYCIN
     Dosage: 1 G, UNK
     Dates: start: 20180226, end: 20180308
  9. OMEPRAZOL [Concomitant]
     Active Substance: OMEPRAZOLE
     Dosage: 20 MG, UNK
     Dates: start: 20180212
  10. SINGULAIR [Concomitant]
     Active Substance: MONTELUKAST SODIUM
     Dosage: 10 MG, UNK
     Route: 048
     Dates: start: 20180212
  11. ACYCLOVIR. [Concomitant]
     Active Substance: ACYCLOVIR
     Dosage: 400 MG, UNK
     Dates: start: 20180205
  12. ALLOPURINOL. [Concomitant]
     Active Substance: ALLOPURINOL
     Dosage: 100 MG, UNK
     Dates: start: 20180205
  13. PARACETAMOL [Concomitant]
     Active Substance: ACETAMINOPHEN
     Dosage: 750 MG, UNK
     Route: 048
     Dates: start: 20180212
  14. MEROPENEM. [Concomitant]
     Active Substance: MEROPENEM
     Dosage: 500 MG, UNK
     Dates: start: 20180226, end: 20180311

REACTIONS (1)
  - Thrombocytopenia [Recovered/Resolved]

NARRATIVE: CASE EVENT DATE: 20180326
